FAERS Safety Report 7571782-5 (Version None)
Quarter: 2011Q2

REPORT INFORMATION
  Report Type: 
  Country: None (occurrence: None)
  Receive Date: 20110624
  Receipt Date: 20110608
  Transmission Date: 20111010
  Serious: No
  Sender: FDA-Public Use
  Company Number: US-B.I. PHARMACEUTICALS,INC./RIDGEFIELD-2011-BP-14957BP

PATIENT
  Age: 71 Year
  Sex: Male

DRUGS (4)
  1. ACCUPRIL [Concomitant]
     Indication: HYPERTENSION
     Route: 048
  2. METFORMIN HCL [Concomitant]
     Indication: DIABETES MELLITUS
     Route: 048
  3. PRADAXA [Suspect]
     Indication: ATRIAL FIBRILLATION
     Dosage: 300 MG
     Route: 048
     Dates: start: 20110301
  4. GLYBURIDE [Concomitant]
     Indication: DIABETES MELLITUS
     Route: 048

REACTIONS (2)
  - DYSGEUSIA [None]
  - BLOODY DISCHARGE [None]
